FAERS Safety Report 24781981 (Version 1)
Quarter: 2024Q4

REPORT INFORMATION
  Report Type: Spontaneous
  Country: US (occurrence: None)
  Receive Date: 20241226
  Receipt Date: 20241226
  Transmission Date: 20250115
  Serious: Yes (Disabling, Other)
  Sender: Public
  Company Number: None

PATIENT
  Age: 69 Year
  Sex: Female
  Weight: 41.4 kg

DRUGS (9)
  1. CLARISCAN [Suspect]
     Active Substance: GADOTERATE MEGLUMINE
     Indication: Magnetic resonance imaging
     Dosage: OTHER STRENGTH : MMOL/100ML;?OTHER QUANTITY : 1 INJECTION(S);?
     Route: 042
     Dates: start: 20241104, end: 20241104
  2. CLARISCAN [Suspect]
     Active Substance: GADOTERATE MEGLUMINE
     Indication: Scan with contrast
  3. DEVICE [Suspect]
     Active Substance: DEVICE
  4. TYLENOL [Concomitant]
     Active Substance: ACETAMINOPHEN
  5. XANAX [Concomitant]
     Active Substance: ALPRAZOLAM
  6. Protein shakes [Concomitant]
  7. Nuqlio micronutrion powder [Concomitant]
  8. Dentitox [Concomitant]
  9. Xylomelts [Concomitant]

REACTIONS (6)
  - Headache [None]
  - Musculoskeletal stiffness [None]
  - Musculoskeletal stiffness [None]
  - Peripheral coldness [None]
  - Musculoskeletal stiffness [None]
  - Infusion site extravasation [None]

NARRATIVE: CASE EVENT DATE: 20241104
